FAERS Safety Report 8993601 (Version 2)
Quarter: 2013Q1

REPORT INFORMATION
  Report Type: Spontaneous
  Country: US (occurrence: US)
  Receive Date: 20130102
  Receipt Date: 20130115
  Transmission Date: 20140127
  Serious: No
  Sender: FDA-Public Use
  Company Number: US-ROXANE LABORATORIES, INC.-2012-RO-02595RO

PATIENT
  Sex: Male

DRUGS (1)
  1. FLUTICASONE [Suspect]

REACTIONS (2)
  - Alcohol poisoning [Unknown]
  - Product quality issue [Unknown]
